FAERS Safety Report 5171747-7 (Version None)
Quarter: 2006Q4

REPORT INFORMATION
  Report Type: 
  Country: None (occurrence: None)
  Receive Date: 20061205
  Receipt Date: 20061019
  Transmission Date: 20070319
  Serious: Yes (Hospitalization, Other)
  Sender: FDA-Public Use
  Company Number: 06-0135TG FU 1

PATIENT
  Age: 49 Year
  Sex: Female
  Weight: 77.1115 kg

DRUGS (6)
  1. FENOFIBRATE [Suspect]
     Indication: HYPERCHOLESTEROLAEMIA
     Dosage: 160 MG QD, PO
     Route: 048
     Dates: start: 20060501, end: 20061018
  2. ZANTAC [Concomitant]
  3. DIOVAN HCT [Concomitant]
  4. NULEV [Concomitant]
  5. CENTRUM OTC VITAMIN [Concomitant]
  6. FIBERCON OTC SUPPLEMENT [Concomitant]

REACTIONS (4)
  - ANGINA PECTORIS [None]
  - DIZZINESS [None]
  - PARAESTHESIA [None]
  - PRESYNCOPE [None]
